FAERS Safety Report 6985841-9 (Version None)
Quarter: 2010Q3

REPORT INFORMATION
  Report Type: 
  Country: None (occurrence: None)
  Receive Date: 20100827
  Receipt Date: 20090709
  Transmission Date: 20110219
  Serious: No
  Sender: FDA-Public Use
  Company Number: 001233

PATIENT
  Sex: Male

DRUGS (1)
  1. LACOSAMIDE [Suspect]
     Indication: CONVULSION
     Dosage: 50 MG BID INTRAVENOUS (NOT OTHERWISE SPECIFIED), 50 MG BID ORAL, 100 MG BID ORAL
     Route: 048

REACTIONS (2)
  - ERYTHEMA [None]
  - INFUSION SITE SWELLING [None]
